FAERS Safety Report 4284427-7 (Version None)
Quarter: 2004Q1

REPORT INFORMATION
  Report Type: 
  Country: None (occurrence: None)
  Receive Date: 20040130
  Receipt Date: 20040108
  Transmission Date: 20041129
  Serious: Yes (Other)
  Sender: FDA-Public Use
  Company Number: USA040156139

PATIENT
  Age: 6 Year
  Sex: Female

DRUGS (3)
  1. HUMALOG [Suspect]
     Indication: DIABETES MELLITUS
     Dosage: 8 U/DAY
  2. HUMULIN L [Suspect]
     Indication: DIABETES MELLITUS
     Dosage: 20 U/DAY
  3. GLUCAGON [Concomitant]

REACTIONS (3)
  - CONVULSION [None]
  - DEVICE FAILURE [None]
  - HYPOGLYCAEMIA [None]
